FAERS Safety Report 9305973 (Version 1)
Quarter: 2013Q2

REPORT INFORMATION
  Report Type: Spontaneous
  Country: TR (occurrence: None)
  Receive Date: 20130520
  Receipt Date: 20130520
  Transmission Date: 20140414
  Serious: Yes (Hospitalization, Other)
  Sender: FDA-Public Use
  Company Number: 2013P1005712

PATIENT
  Age: 29 Year
  Sex: Male

DRUGS (2)
  1. AMOXICILLIN+CLAVULANATE [Suspect]
     Indication: UPPER RESPIRATORY TRACT INFECTION
     Route: 048
  2. AMPICILLIN AND SULBACTAM [Suspect]
     Indication: UPPER RESPIRATORY TRACT INFECTION
     Route: 030

REACTIONS (3)
  - Dyspnoea [None]
  - Chest pain [None]
  - Kounis syndrome [None]
